FAERS Safety Report 10074689 (Version 1)
Quarter: 2014Q2

REPORT INFORMATION
  Report Type: Spontaneous
  Country: GB (occurrence: GB)
  Receive Date: 20140414
  Receipt Date: 20140414
  Transmission Date: 20141212
  Serious: Yes (Hospitalization)
  Sender: FDA-Public Use
  Company Number: GB-JNJFOC-20140401425

PATIENT
  Sex: Female

DRUGS (3)
  1. GYNO-DAKTARIN [Suspect]
     Route: 048
  2. GYNO-DAKTARIN [Suspect]
     Indication: ORAL CANDIDIASIS
     Route: 048
  3. WARFARIN [Interacting]
     Indication: PRODUCT USED FOR UNKNOWN INDICATION
     Route: 065

REACTIONS (3)
  - International normalised ratio increased [Unknown]
  - Drug interaction [Unknown]
  - Drug prescribing error [Unknown]
